FAERS Safety Report 9904301 (Version 4)
Quarter: 2014Q3

REPORT INFORMATION
  Report Type: Spontaneous
  Country: US (occurrence: US)
  Receive Date: 20140218
  Receipt Date: 20140716
  Transmission Date: 20150326
  Serious: Yes (Other)
  Sender: FDA-Public Use
  Company Number: US-BEH-2013035146

PATIENT
  Age: 68 Year
  Sex: Male
  Weight: 101 kg

DRUGS (6)
  1. CARIMUNE [Suspect]
     Active Substance: HUMAN IMMUNOGLOBULIN G
     Indication: PROPHYLAXIS
     Route: 042
  2. CARIMUNE [Suspect]
     Active Substance: HUMAN IMMUNOGLOBULIN G
     Indication: IMMUNE THROMBOCYTOPENIC PURPURA
     Dosage: STARTED IN SEP-2011
  3. CARIMUNE [Suspect]
     Active Substance: HUMAN IMMUNOGLOBULIN G
     Route: 042
     Dates: end: 20140422
  4. CARIMUNE [Suspect]
     Active Substance: HUMAN IMMUNOGLOBULIN G
     Indication: INFECTION
     Dosage: 40 GM DAILY X 4 DAYS
     Route: 042
     Dates: end: 20140130
  5. METOPROLOL [Concomitant]
     Active Substance: METOPROLOL
  6. TIKOSYN [Suspect]
     Active Substance: DOFETILIDE
     Indication: ATRIAL FIBRILLATION

REACTIONS (11)
  - Blood glucose increased [Unknown]
  - Atrial fibrillation [Unknown]
  - Rash pruritic [Not Recovered/Not Resolved]
  - Rash [Not Recovered/Not Resolved]
  - Mouth haemorrhage [Unknown]
  - Hypersensitivity [Not Recovered/Not Resolved]
  - Pain [Not Recovered/Not Resolved]
  - Blood urine present [Unknown]
  - Hypertension [Unknown]
  - Protein total increased [Unknown]
  - Petechiae [Unknown]

NARRATIVE: CASE EVENT DATE: 2011
